FAERS Safety Report 5475441-4 (Version None)
Quarter: 2007Q4

REPORT INFORMATION
  Report Type: 
  Country: None (occurrence: None)
  Receive Date: 20071003
  Receipt Date: 20070924
  Transmission Date: 20080405
  Serious: Yes (Hospitalization, Other)
  Sender: FDA-Public Use
  Company Number: SE-JNJFOC-20070905000

PATIENT
  Age: 35 Year
  Sex: Male

DRUGS (8)
  1. REMICADE [Suspect]
     Indication: COLITIS ULCERATIVE
     Route: 042
  2. AZATHIOPRINE SODIUM [Suspect]
     Indication: COLITIS ULCERATIVE
     Route: 048
  3. PREDNISOLONE [Suspect]
     Indication: COLITIS ULCERATIVE
  4. PENTASA [Concomitant]
  5. DIPENTUM [Concomitant]
  6. PRED-CLYSMA [Concomitant]
     Route: 054
  7. METRONIDAZOLE [Concomitant]
  8. CIPROXIN [Concomitant]

REACTIONS (2)
  - COLITIS ULCERATIVE [None]
  - PAPILLARY THYROID CANCER [None]
